FAERS Safety Report 5375130-0 (Version None)
Quarter: 2007Q2

REPORT INFORMATION
  Report Type: 
  Country: None (occurrence: None)
  Receive Date: 20070629
  Receipt Date: 20070406
  Transmission Date: 20071010
  Serious: Yes (Other)
  Sender: FDA-Public Use
  Company Number: US-ASTRAZENECA-2007UW06923

PATIENT
  Age: 73 Year
  Sex: Male
  Weight: 84.4 kg

DRUGS (6)
  1. ZOLADEX [Suspect]
     Route: 058
     Dates: start: 20060101
  2. ASPIRIN [Concomitant]
  3. COZAAR [Concomitant]
     Indication: HYPERTENSION
  4. NADOLOL [Concomitant]
     Indication: HYPERTENSION
  5. GLIPIZIDE [Concomitant]
  6. TYLENOL [Concomitant]

REACTIONS (1)
  - BLOOD PRESSURE INCREASED [None]
